FAERS Safety Report 13090360 (Version 1)
Quarter: 2017Q1

REPORT INFORMATION
  Report Type: Spontaneous
  Country: US (occurrence: US)
  Receive Date: 20170105
  Receipt Date: 20170105
  Transmission Date: 20170428
  Serious: No
  Sender: FDA-Public Use
  Company Number: US-ENDO PHARMACEUTICALS INC.-2016-001036

PATIENT
  Age: 52 Year
  Sex: Male
  Weight: 127.12 kg

DRUGS (3)
  1. TESTOSTERONE GEL [Suspect]
     Active Substance: TESTOSTERONE
     Dosage: 2 PUMPS TO EACH THIGH
     Route: 065
     Dates: start: 20160111, end: 20160113
  2. TESTOSTERONE GEL [Suspect]
     Active Substance: TESTOSTERONE
     Indication: BLOOD TESTOSTERONE DECREASED
     Dosage: 2 PUMPS TO EACH THIGH
     Route: 065
     Dates: start: 20160114
  3. TESTOSTERONE GEL [Suspect]
     Active Substance: TESTOSTERONE
     Dosage: 2 PUMPS TO EACH THIGH
     Route: 065
     Dates: start: 2015, end: 20160111

REACTIONS (5)
  - Application site scab [Unknown]
  - Drug administered at inappropriate site [Recovered/Resolved]
  - Application site rash [Recovering/Resolving]
  - Application site irritation [Unknown]
  - Application site pruritus [Not Recovered/Not Resolved]

NARRATIVE: CASE EVENT DATE: 201601
